FAERS Safety Report 6155859-7 (Version None)
Quarter: 2009Q2

REPORT INFORMATION
  Report Type: 
  Country: None (occurrence: None)
  Receive Date: 20090415
  Receipt Date: 20090407
  Transmission Date: 20091009
  Serious: Yes (Hospitalization)
  Sender: FDA-Public Use
  Company Number: GB-AMGEN-US342446

PATIENT
  Age: 57 Year
  Sex: Male

DRUGS (22)
  1. ENBREL [Suspect]
     Indication: RHEUMATOID ARTHRITIS
     Route: 058
     Dates: start: 20081031
  2. ACETAMINOPHEN W/ CODEINE [Concomitant]
     Route: 048
     Dates: start: 20081219
  3. ACETAMINOPHEN W/ CODEINE [Concomitant]
     Route: 048
     Dates: start: 20060323
  4. FERROUS SULFATE TAB [Concomitant]
     Route: 048
     Dates: start: 20081202
  5. FERROUS SULFATE TAB [Concomitant]
     Route: 048
     Dates: start: 20090207
  6. FOLIC ACID [Concomitant]
     Route: 048
     Dates: start: 20081031
  7. ISONIAZID [Concomitant]
     Dosage: 100 MG FREQUENCY UNKNOWN
     Route: 048
     Dates: start: 20081223
  8. TROSPIUM CHLORIDE [Concomitant]
     Dosage: 20 MG FREQUENCY UNKNOWN
     Route: 048
     Dates: start: 20060323
  9. METHOTREXATE [Concomitant]
     Route: 048
     Dates: start: 20061218
  10. METHYLPREDNISOLONE ACETATE [Concomitant]
  11. NAPROXEN [Concomitant]
     Route: 048
     Dates: start: 20090106
  12. NAPROXEN [Concomitant]
     Dates: start: 20090207
  13. OMEPRAZOLE [Concomitant]
     Dosage: 20 / 40 MG ONCE A DAY
     Dates: start: 20081202
  14. OMEPRAZOLE [Concomitant]
     Dosage: 20 / 40 MG ONCE A DAY
     Dates: start: 20090207
  15. OMEPRAZOLE [Concomitant]
     Dosage: 20 / 40 MG ONCE A DAY
     Dates: start: 20081218
  16. OMEPRAZOLE [Concomitant]
     Dosage: 20 / 40 MG ONCE A DAY
     Dates: start: 20081119
  17. PYRIDOXINE HYDROCHLORIDE [Concomitant]
     Route: 048
     Dates: start: 20081223
  18. TRAMADOL HYDROCHLORIDE [Concomitant]
     Route: 048
     Dates: start: 20081219
  19. AMITRIPTYLINE HYDROCHLORIDE [Concomitant]
     Route: 048
     Dates: start: 20090106
  20. LISINOPRIL [Concomitant]
     Dosage: 10 / 20 MG ONCE A DAY
     Route: 048
     Dates: start: 20080421
  21. LISINOPRIL [Concomitant]
     Dosage: 10 / 20 MG ONCE A DAY
     Route: 048
     Dates: start: 20080326
  22. LISINOPRIL [Concomitant]
     Dosage: 10 / 20 MG ONCE A DAY
     Route: 048
     Dates: start: 20080526

REACTIONS (5)
  - CHEST DISCOMFORT [None]
  - DIZZINESS [None]
  - HEART RATE ABNORMAL [None]
  - PALPITATIONS [None]
  - SUPRAVENTRICULAR TACHYCARDIA [None]
